FAERS Safety Report 21337899 (Version 3)
Quarter: 2022Q4

REPORT INFORMATION
  Report Type: Report from Study
  Country: FR (occurrence: None)
  Receive Date: 20220915
  Receipt Date: 20221026
  Transmission Date: 20230113
  Serious: Yes (Death)
  Sender: FDA-Public Use
  Company Number: 2022A311577

PATIENT
  Age: 84 Year
  Sex: Male
  Weight: 55 kg

DRUGS (1)
  1. EVUSHELD [Suspect]
     Active Substance: CILGAVIMAB\TIXAGEVIMAB
     Indication: COVID-19 prophylaxis
     Dosage: 300 MG (150 MG TIXAGEVIMAB/150 MG CILGAVIMAB)300.0MG ONCE/SINGLE ADMINISTRATION
     Route: 030
     Dates: start: 20220412

REACTIONS (3)
  - Malignant neoplasm progression [Fatal]
  - COVID-19 [Fatal]
  - Pyrexia [Fatal]

NARRATIVE: CASE EVENT DATE: 20220101
